FAERS Safety Report 18930805 (Version 1)
Quarter: 2021Q1

REPORT INFORMATION
  Report Type: Spontaneous
  Country: US (occurrence: US)
  Receive Date: 20210224
  Receipt Date: 20210224
  Transmission Date: 20210420
  Serious: No
  Sender: FDA-Public Use
  Company Number: US-BIOCODEX SA-2021000033

PATIENT
  Sex: Male

DRUGS (4)
  1. FYCOMPA [Concomitant]
     Active Substance: PERAMPANEL
  2. DIACOMIT [Suspect]
     Active Substance: STIRIPENTOL
     Indication: EPILEPSY
     Dosage: 250 MG TWICE DAILY
     Dates: start: 20201230, end: 20210118
  3. CLOBAZAM. [Concomitant]
     Active Substance: CLOBAZAM
  4. BANZEL [Concomitant]
     Active Substance: RUFINAMIDE

REACTIONS (2)
  - Product use in unapproved indication [Unknown]
  - Adverse reaction [Unknown]
